FAERS Safety Report 4910491-5 (Version None)
Quarter: 2006Q1

REPORT INFORMATION
  Report Type: 
  Country: None (occurrence: None)
  Receive Date: 20060209
  Receipt Date: 20060203
  Transmission Date: 20060701
  Serious: Yes (Hospitalization)
  Sender: FDA-Public Use
  Company Number: 2006-00421

PATIENT
  Age: 25 Year
  Sex: Female

DRUGS (1)
  1. SULFASALAZINE (WATSON LABORATORIES) (SULFASALAZINE) TABLET, 500MG [Suspect]
     Indication: COLITIS ULCERATIVE
     Dosage: 4G, DAILY, ORAL
     Route: 048

REACTIONS (1)
  - NON-CARDIOGENIC PULMONARY OEDEMA [None]
